FAERS Safety Report 6848368-0 (Version None)
Quarter: 2010Q3

REPORT INFORMATION
  Report Type: 
  Country: None (occurrence: None)
  Receive Date: 20100714
  Receipt Date: 20100720
  Transmission Date: 20110219
  Serious: Yes (Disabling)
  Sender: FDA-Public Use
  Company Number: 2010SP033594

PATIENT
  Age: 23 Year
  Sex: Female

DRUGS (2)
  1. IMPLANON [Suspect]
     Indication: CONTRACEPTION
     Dosage: SBDE
     Dates: start: 20080418
  2. DARVOCET [Concomitant]

REACTIONS (5)
  - ANAEMIA [None]
  - BRAIN INJURY [None]
  - DRUG INEFFECTIVE [None]
  - MENSTRUAL DISORDER [None]
  - MIGRAINE [None]
